FAERS Safety Report 17529093 (Version 3)
Quarter: 2021Q1

REPORT INFORMATION
  Report Type: Spontaneous
  Country: US (occurrence: US)
  Receive Date: 20200311
  Receipt Date: 20210212
  Transmission Date: 20210419
  Serious: No
  Sender: FDA-Public Use
  Company Number: US-ROCHE-2533862

PATIENT
  Sex: Male

DRUGS (2)
  1. ROZLYTREK [Suspect]
     Active Substance: ENTRECTINIB
     Route: 065
     Dates: start: 20200108
  2. ROZLYTREK [Suspect]
     Active Substance: ENTRECTINIB
     Indication: LUNG NEOPLASM MALIGNANT
     Dosage: ONCE DAILY
     Route: 065
     Dates: start: 20200108

REACTIONS (13)
  - Dysarthria [Recovering/Resolving]
  - Blood cholesterol increased [Unknown]
  - Somnolence [Recovering/Resolving]
  - Haematocrit decreased [Unknown]
  - Red blood cell count decreased [Unknown]
  - Muscular weakness [Recovering/Resolving]
  - Blood glucose increased [Unknown]
  - Lymphocyte count increased [Unknown]
  - Dizziness [Recovering/Resolving]
  - Constipation [Recovering/Resolving]
  - Hypotension [Unknown]
  - Haemoglobin decreased [Unknown]
  - Asthenia [Unknown]
